FAERS Safety Report 7439515-0 (Version None)
Quarter: 2011Q2

REPORT INFORMATION
  Report Type: 
  Country: None (occurrence: None)
  Receive Date: 20110427
  Receipt Date: 20110418
  Transmission Date: 20111010
  Serious: Yes (Hospitalization)
  Sender: FDA-Public Use
  Company Number: SE-ASTRAZENECA-2011SE22178

PATIENT
  Age: 87 Year
  Sex: Male

DRUGS (9)
  1. ATACAND [Suspect]
     Indication: CARDIOMYOPATHY
     Route: 048
     Dates: end: 20110223
  2. SIMVASTATIN [Concomitant]
  3. LEVOTHYROXINE SODIUM [Concomitant]
  4. SOBRIL [Concomitant]
  5. BISOPROLOL [Concomitant]
  6. TRIOBE [Concomitant]
  7. LASIX [Concomitant]
  8. OMEPRAZOLE [Concomitant]
  9. CLOPIDOGREL [Concomitant]

REACTIONS (1)
  - HYPOTENSION [None]
